FAERS Safety Report 19781399 (Version 1)
Quarter: 2021Q3

REPORT INFORMATION
  Report Type: Report from Study
  Country: TR (occurrence: TR)
  Receive Date: 20210902
  Receipt Date: 20210902
  Transmission Date: 20211014
  Serious: Yes (Death, Other)
  Sender: FDA-Public Use
  Company Number: TR-JNJFOC-20210854573

PATIENT

DRUGS (1)
  1. REMICADE [Suspect]
     Active Substance: INFLIXIMAB
     Indication: BEHCET^S SYNDROME
     Route: 042

REACTIONS (16)
  - Neoplasm malignant [Unknown]
  - Hepatotoxicity [Unknown]
  - Lung adenocarcinoma [Fatal]
  - Surgery [Unknown]
  - Off label use [Unknown]
  - Product use in unapproved indication [Unknown]
  - Drug ineffective [Unknown]
  - Infusion related reaction [Unknown]
  - Ejection fraction decreased [Unknown]
  - Pregnancy [Unknown]
  - Lupus-like syndrome [Unknown]
  - Splenic infarction [Unknown]
  - Infection [Unknown]
  - Treatment noncompliance [Unknown]
  - Psoriasis [Unknown]
  - Lichen planus [Unknown]
